FAERS Safety Report 8855007 (Version 1)
Quarter: 2012Q4

REPORT INFORMATION
  Report Type: 
  Country: US (occurrence: US)
  Receive Date: 20121023
  Receipt Date: 20121023
  Transmission Date: 20130627
  Serious: Yes (Other)
  Sender: FDA-Public Use
  Company Number: PHEH2012US020329

PATIENT
  Sex: Female

DRUGS (1)
  1. DIOVAN [Suspect]
     Dosage: 160 mg
     Route: 048

REACTIONS (5)
  - Ovarian cancer [Unknown]
  - Ovarian disorder [Unknown]
  - Throat cancer [Unknown]
  - Diabetes mellitus [Unknown]
  - Arthritis [Unknown]
